FAERS Safety Report 8501350-X (Version None)
Quarter: 2012Q3

REPORT INFORMATION
  Report Type: 
  Country: None (occurrence: None)
  Receive Date: 20120710
  Receipt Date: 20120629
  Transmission Date: 20120928
  Serious: Yes (Other)
  Sender: FDA-Public Use
  Company Number: IT-ACTELION-A-CH2012-68177

PATIENT
  Age: 13 Year
  Sex: Female

DRUGS (2)
  1. ZAVESCA [Suspect]
     Indication: NIEMANN-PICK DISEASE
     Dosage: UNK MG, UNK
     Route: 048
  2. ZAVESCA [Suspect]
     Dosage: 83 MG, TID
     Route: 048
     Dates: start: 20070514

REACTIONS (6)
  - CONVULSION [None]
  - WHEELCHAIR USER [None]
  - COMMUNICATION DISORDER [None]
  - ACTIVITIES OF DAILY LIVING IMPAIRED [None]
  - NO THERAPEUTIC RESPONSE [None]
  - DYSPHAGIA [None]
